FAERS Safety Report 9360158 (Version 3)
Quarter: 2013Q3

REPORT INFORMATION
  Report Type: Report from Study
  Country: DE (occurrence: DE)
  Receive Date: 20130621
  Receipt Date: 20130813
  Transmission Date: 20140515
  Serious: Yes (Hospitalization)
  Sender: FDA-Public Use
  Company Number: DE-BIOGENIDEC-2013BI054291

PATIENT
  Age: 52 Year
  Sex: Female
  Weight: 71 kg

DRUGS (10)
  1. BG00012 [Suspect]
     Indication: MULTIPLE SCLEROSIS
     Dates: start: 20101126
  2. FLUCTIN [Concomitant]
     Indication: DEPRESSION
     Route: 048
     Dates: start: 2007
  3. FLUCTIN [Concomitant]
     Indication: FATIGUE
     Route: 048
     Dates: start: 2007
  4. SIMVASTATINE [Concomitant]
     Indication: HYPOLIPIDAEMIA
     Route: 048
     Dates: start: 2006
  5. SIMVASTATINE [Concomitant]
     Indication: MIGRAINE
     Route: 048
     Dates: start: 2006
  6. SIMVASTATINE [Concomitant]
     Indication: HYPOLIPIDAEMIA
     Route: 048
     Dates: start: 2006
  7. SIMVASTATINE [Concomitant]
     Indication: MIGRAINE
     Route: 048
     Dates: start: 2006
  8. OMEPRAZOL [Concomitant]
     Indication: GASTRITIS PROPHYLAXIS
     Route: 048
     Dates: start: 20090121
  9. CERAZETTE [Concomitant]
     Indication: CONTRACEPTION
     Route: 048
     Dates: start: 20110523
  10. IBUPROFEN [Concomitant]
     Indication: MIGRAINE
     Route: 048
     Dates: start: 2002

REACTIONS (1)
  - Shoulder operation [Recovered/Resolved with Sequelae]
